FAERS Safety Report 5713506-X (Version None)
Quarter: 2008Q2

REPORT INFORMATION
  Report Type: 
  Country: None (occurrence: None)
  Receive Date: 20080422
  Receipt Date: 20080411
  Transmission Date: 20081010
  Serious: Yes (Other)
  Sender: FDA-Public Use
  Company Number: US-ELI_LILLY_AND_COMPANY-US200803003713

PATIENT
  Age: 66 Year
  Sex: Female

DRUGS (5)
  1. HUMALOG [Suspect]
     Dosage: UNK, UNK
  2. LANTUS [Concomitant]
  3. LISINOPRIL [Concomitant]
  4. SYNTHROID [Concomitant]
  5. LIPITOR [Concomitant]

REACTIONS (1)
  - ANGIOMYOLIPOMA [None]
